FAERS Safety Report 20484755 (Version 4)
Quarter: 2022Q1

REPORT INFORMATION
  Report Type: Report from Study
  Country: DE (occurrence: DE)
  Receive Date: 20220217
  Receipt Date: 20220323
  Transmission Date: 20220423
  Serious: Yes (Hospitalization)
  Sender: FDA-Public Use
  Company Number: DE-PFIZER INC-202200208539

PATIENT
  Age: 72 Year
  Sex: Female

DRUGS (3)
  1. INLYTA [Suspect]
     Active Substance: AXITINIB
     Indication: Renal cell carcinoma
     Dosage: 5 MG, 2X/DAY
     Dates: start: 20140523, end: 20140712
  2. INLYTA [Suspect]
     Active Substance: AXITINIB
     Dosage: 6 MG, 1X/DAY
     Dates: start: 20140801, end: 201612
  3. INLYTA [Suspect]
     Active Substance: AXITINIB
     Dosage: 6 MG, 1X/DAY
     Dates: start: 20170213, end: 201801

REACTIONS (8)
  - Urinary retention [Recovered/Resolved]
  - Dysuria [Recovered/Resolved]
  - Abdominal pain [Recovered/Resolved]
  - Hypertension [Unknown]
  - Nausea [Not Recovered/Not Resolved]
  - Vomiting [Not Recovered/Not Resolved]
  - Gastrooesophageal reflux disease [Not Recovered/Not Resolved]
  - Rash [Recovered/Resolved]

NARRATIVE: CASE EVENT DATE: 20140701
